FAERS Safety Report 19857475 (Version 6)
Quarter: 2021Q4

REPORT INFORMATION
  Report Type: Report from Study
  Country: IT (occurrence: None)
  Receive Date: 20210920
  Receipt Date: 20211105
  Transmission Date: 20220304
  Serious: Yes (Life-Threatening, Hospitalization)
  Sender: FDA-Public Use
  Company Number: IT-EISAI MEDICAL RESEARCH-EC-2021-099865

PATIENT
  Age: 87 Year
  Sex: Male
  Weight: 83 kg

DRUGS (12)
  1. LENVATINIB [Suspect]
     Active Substance: LENVATINIB
     Indication: Hepatocellular carcinoma
     Dosage: FLUCTUATED DOSE
     Route: 048
     Dates: start: 20191205, end: 20210905
  2. LENVATINIB [Suspect]
     Active Substance: LENVATINIB
     Route: 048
     Dates: start: 20210906, end: 20210906
  3. PLACEBO [Suspect]
     Active Substance: UNSPECIFIED INGREDIENT
     Indication: Hepatocellular carcinoma
     Dosage: FLUCTUATED DOSE
     Route: 041
     Dates: start: 20191205, end: 20210811
  4. PLACEBO [Suspect]
     Active Substance: UNSPECIFIED INGREDIENT
     Dosage: FLUCTUATED DOSE
     Route: 041
     Dates: start: 20210902, end: 20210902
  5. PRADAXA [Suspect]
     Active Substance: DABIGATRAN ETEXILATE MESYLATE
     Dosage: TOTAL DAILY DOSE 110 MG
     Route: 048
     Dates: start: 20200228
  6. DABIGATRAN [Concomitant]
     Active Substance: DABIGATRAN
     Dates: start: 201701
  7. DEURSIL [Concomitant]
     Active Substance: URSODIOL
     Dates: start: 20200228
  8. RAMIPRIL [Concomitant]
     Active Substance: RAMIPRIL
     Dates: start: 20200421
  9. AMLODIPINE [Concomitant]
     Active Substance: AMLODIPINE BESYLATE
     Dates: start: 20200901
  10. METOCLOPRAMIDE HYDROCHLORIDE [Concomitant]
     Active Substance: METOCLOPRAMIDE HYDROCHLORIDE
     Dates: start: 20201028
  11. PANTOPRAZOLE [Concomitant]
     Active Substance: PANTOPRAZOLE
     Dates: start: 20201028
  12. ACETAMINOPHEN [Concomitant]
     Active Substance: ACETAMINOPHEN
     Dates: start: 20210614

REACTIONS (1)
  - Tumour haemorrhage [Recovered/Resolved with Sequelae]

NARRATIVE: CASE EVENT DATE: 20210906
